FAERS Safety Report 20865420 (Version 4)
Quarter: 2022Q3

REPORT INFORMATION
  Report Type: Spontaneous
  Country: US (occurrence: US)
  Receive Date: 20220524
  Receipt Date: 20220708
  Transmission Date: 20221027
  Serious: Yes (Death, Hospitalization, Other)
  Sender: FDA-Public Use
  Company Number: US-JNJFOC-20220534600

PATIENT
  Age: 89 Year
  Sex: Male

DRUGS (2)
  1. JOHNSONS BABY PURE CORNSTARCH MEDICATED [Suspect]
     Active Substance: ZINC OXIDE
     Indication: Product used for unknown indication
     Dosage: MANY YEARS
     Route: 061
  2. JOHNSONS BABY POWDER (TALC) [Suspect]
     Active Substance: TALC
     Indication: Product used for unknown indication
     Dosage: A PALMFUL, USED DAILY/SOMETIMES TWICE A DAY, MANY YEARS (NEVER EVER MISSED A DAY)
     Route: 061
     Dates: start: 1952

REACTIONS (1)
  - Neoplasm malignant [Fatal]

NARRATIVE: CASE EVENT DATE: 20200601
